FAERS Safety Report 5675841-3 (Version None)
Quarter: 2008Q1

REPORT INFORMATION
  Report Type: 
  Country: None (occurrence: None)
  Receive Date: 20080318
  Receipt Date: 20080307
  Transmission Date: 20080703
  Serious: Yes (Death)
  Sender: FDA-Public Use
  Company Number: S08-USA-00923-01

PATIENT
  Age: 41 Year
  Sex: Male

DRUGS (5)
  1. CELEXA [Suspect]
     Dates: start: 20080223, end: 20080223
  2. HEPARIN [Concomitant]
  3. PHOSLO [Concomitant]
  4. BLOOD PRESSURE MEDICATION (NOS) [Concomitant]
  5. LIPITOR [Concomitant]

REACTIONS (6)
  - DRUG ADMINISTRATION ERROR [None]
  - MALAISE [None]
  - PULMONARY EMBOLISM [None]
  - SOMNOLENCE [None]
  - STOMACH DISCOMFORT [None]
  - WRONG DRUG ADMINISTERED [None]
